FAERS Safety Report 6985082-5 (Version None)
Quarter: 2010Q3

REPORT INFORMATION
  Report Type: 
  Country: None (occurrence: None)
  Receive Date: 20100915
  Receipt Date: 20100325
  Transmission Date: 20110219
  Serious: No
  Sender: FDA-Public Use
  Company Number: US-PFIZER INC-2010039206

PATIENT
  Age: 50 Year
  Sex: Female
  Weight: 98.866 kg

DRUGS (6)
  1. LYRICA [Suspect]
     Indication: NERVE INJURY
     Dosage: 75 MG, DAILY
     Route: 048
     Dates: start: 20100312
  2. CLONIDINE [Concomitant]
     Indication: HYPERTENSION
     Dosage: UNK
  3. ESTRADIOL [Concomitant]
     Indication: HYSTERECTOMY
     Dosage: UNK
  4. ZOLOFT [Concomitant]
     Indication: DEPRESSION
     Dosage: UNK
  5. PERCOCET [Concomitant]
     Indication: BACK PAIN
     Dosage: UNK
     Dates: start: 20080101
  6. SOMA [Concomitant]
     Indication: PAIN
     Dosage: UNK
     Dates: start: 20080101

REACTIONS (1)
  - DIZZINESS [None]
